FAERS Safety Report 26097512 (Version 1)
Quarter: 2025Q4

REPORT INFORMATION
  Report Type: Spontaneous
  Country: EU (occurrence: EU)
  Receive Date: 20251127
  Receipt Date: 20251127
  Transmission Date: 20260117
  Serious: Yes (Other)
  Sender: PFIZER
  Company Number: EU-PFIZER INC-PV202500135192

PATIENT
  Age: 1 Year
  Sex: Female

DRUGS (8)
  1. ETANERCEPT [Suspect]
     Active Substance: ETANERCEPT
     Indication: Autoinflammatory disease
     Dosage: UNK
  2. METHYLPREDNISOLONE [Suspect]
     Active Substance: METHYLPREDNISOLONE
     Indication: Autoinflammatory disease
     Dosage: HIGH DOSE
  3. METHYLPREDNISOLONE [Suspect]
     Active Substance: METHYLPREDNISOLONE
     Dosage: STEROID TAPERING
  4. METHOTREXATE SODIUM [Suspect]
     Active Substance: METHOTREXATE SODIUM
     Indication: Autoinflammatory disease
     Dosage: WEEKLY
  5. INFLIXIMAB [Suspect]
     Active Substance: INFLIXIMAB
     Indication: Autoinflammatory disease
     Dosage: UNK
  6. ANAKINRA [Concomitant]
     Active Substance: ANAKINRA
     Indication: Autoinflammatory disease
     Dosage: UNK
  7. ADALIMUMAB [Concomitant]
     Active Substance: ADALIMUMAB
     Indication: Autoinflammatory disease
     Dosage: UNK, WEEKLY
  8. CANAKINUMAB [Concomitant]
     Active Substance: CANAKINUMAB
     Indication: Autoinflammatory disease
     Dosage: UNK

REACTIONS (4)
  - Drug ineffective for unapproved indication [Unknown]
  - Steroid dependence [Unknown]
  - Off label use [Unknown]
  - Off label use [Unknown]
